FAERS Safety Report 22202775 (Version 3)
Quarter: 2023Q2

REPORT INFORMATION
  Report Type: Report from Study
  Country: JP (occurrence: JP)
  Receive Date: 20230412
  Receipt Date: 20230612
  Transmission Date: 20230721
  Serious: Yes (Death, Other)
  Sender: FDA-Public Use
  Company Number: JP-SERVIER-S22012642

PATIENT
  Age: 63 Year
  Sex: Male
  Weight: 68 kg

DRUGS (45)
  1. ONIVYDE [Suspect]
     Active Substance: IRINOTECAN HYDROCHLORIDE
     Indication: Pancreatic carcinoma
     Dosage: 43 MG/M2
     Route: 065
     Dates: start: 20211104, end: 20211104
  2. ONIVYDE [Suspect]
     Active Substance: IRINOTECAN HYDROCHLORIDE
     Dosage: 43 MG/M2
     Route: 065
     Dates: start: 20211118, end: 20211118
  3. ONIVYDE [Suspect]
     Active Substance: IRINOTECAN HYDROCHLORIDE
     Dosage: 43 MG/M2
     Route: 065
     Dates: start: 20211223, end: 20211223
  4. ONIVYDE [Suspect]
     Active Substance: IRINOTECAN HYDROCHLORIDE
     Dosage: 43MG/M2
     Route: 065
     Dates: start: 20220113, end: 20220113
  5. ONIVYDE [Suspect]
     Active Substance: IRINOTECAN HYDROCHLORIDE
     Dosage: 43 MG/M2
     Route: 065
     Dates: start: 20220203, end: 20220203
  6. ONIVYDE [Suspect]
     Active Substance: IRINOTECAN HYDROCHLORIDE
     Dosage: 43 MG/M2
     Route: 065
     Dates: start: 20220217, end: 20220217
  7. ONIVYDE [Suspect]
     Active Substance: IRINOTECAN HYDROCHLORIDE
     Dosage: 43 MG/M2
     Route: 065
     Dates: start: 20220317, end: 20220317
  8. ONIVYDE [Suspect]
     Active Substance: IRINOTECAN HYDROCHLORIDE
     Dosage: 35 MG/M2
     Route: 065
     Dates: start: 20220331, end: 20220331
  9. ONIVYDE [Suspect]
     Active Substance: IRINOTECAN HYDROCHLORIDE
     Dosage: 35 MG/M2
     Route: 065
     Dates: start: 20220414, end: 20220414
  10. ONIVYDE [Suspect]
     Active Substance: IRINOTECAN HYDROCHLORIDE
     Dosage: 35 MG/M2
     Route: 065
     Dates: start: 20220428, end: 20220428
  11. ONIVYDE [Suspect]
     Active Substance: IRINOTECAN HYDROCHLORIDE
     Dosage: 35 MG/M2
     Route: 065
     Dates: start: 20220519, end: 20220519
  12. ONIVYDE [Suspect]
     Active Substance: IRINOTECAN HYDROCHLORIDE
     Dosage: 35 MG/M2
     Route: 065
     Dates: start: 20220602, end: 20220602
  13. ONIVYDE [Suspect]
     Active Substance: IRINOTECAN HYDROCHLORIDE
     Dosage: 35 MG/M2
     Route: 065
     Dates: start: 20220616, end: 20220616
  14. ONIVYDE [Suspect]
     Active Substance: IRINOTECAN HYDROCHLORIDE
     Dosage: 35 MG/M2
     Route: 065
     Dates: start: 20220630, end: 20220630
  15. LEVOLEUCOVORIN CALCIUM [Concomitant]
     Active Substance: LEVOLEUCOVORIN CALCIUM
     Indication: Pancreatic carcinoma
     Dosage: 200 MG/M2
     Route: 065
     Dates: start: 20211104, end: 20211104
  16. LEVOLEUCOVORIN CALCIUM [Concomitant]
     Active Substance: LEVOLEUCOVORIN CALCIUM
     Dosage: 200 MG/M2
     Route: 065
     Dates: start: 20211118, end: 20211118
  17. LEVOLEUCOVORIN CALCIUM [Concomitant]
     Active Substance: LEVOLEUCOVORIN CALCIUM
     Dosage: 200 MG/M2
     Route: 065
     Dates: start: 20211223, end: 20211223
  18. LEVOLEUCOVORIN CALCIUM [Concomitant]
     Active Substance: LEVOLEUCOVORIN CALCIUM
     Dosage: 200 MG/M2
     Route: 065
     Dates: start: 20220113, end: 20220113
  19. LEVOLEUCOVORIN CALCIUM [Concomitant]
     Active Substance: LEVOLEUCOVORIN CALCIUM
     Dosage: 200 MG/M2
     Route: 065
     Dates: start: 20220203, end: 20220203
  20. LEVOLEUCOVORIN CALCIUM [Concomitant]
     Active Substance: LEVOLEUCOVORIN CALCIUM
     Dosage: 200 MG/M2
     Route: 065
     Dates: start: 20220217, end: 20220217
  21. LEVOLEUCOVORIN CALCIUM [Concomitant]
     Active Substance: LEVOLEUCOVORIN CALCIUM
     Dosage: 200 MG/M2
     Route: 065
     Dates: start: 20220317, end: 20220317
  22. LEVOLEUCOVORIN CALCIUM [Concomitant]
     Active Substance: LEVOLEUCOVORIN CALCIUM
     Dosage: 200 MG/M2
     Route: 065
     Dates: start: 20220331, end: 20220331
  23. LEVOLEUCOVORIN CALCIUM [Concomitant]
     Active Substance: LEVOLEUCOVORIN CALCIUM
     Dosage: 200 MG/M2
     Route: 065
     Dates: start: 20220414, end: 20220414
  24. LEVOLEUCOVORIN CALCIUM [Concomitant]
     Active Substance: LEVOLEUCOVORIN CALCIUM
     Dosage: 200 MG/M2
     Route: 065
     Dates: start: 20220428, end: 20220428
  25. LEVOLEUCOVORIN CALCIUM [Concomitant]
     Active Substance: LEVOLEUCOVORIN CALCIUM
     Dosage: 200 MG/M2
     Route: 065
     Dates: start: 20220519, end: 20220519
  26. LEVOLEUCOVORIN CALCIUM [Concomitant]
     Active Substance: LEVOLEUCOVORIN CALCIUM
     Dosage: 200 MG/M2
     Route: 065
     Dates: start: 20220602, end: 20220602
  27. LEVOLEUCOVORIN CALCIUM [Concomitant]
     Active Substance: LEVOLEUCOVORIN CALCIUM
     Dosage: 200 MG/M2
     Route: 065
     Dates: start: 20220616, end: 20220616
  28. LEVOLEUCOVORIN CALCIUM [Concomitant]
     Active Substance: LEVOLEUCOVORIN CALCIUM
     Dosage: 200 MG/M2
     Route: 065
     Dates: start: 20220630, end: 20220630
  29. FLUOROURACIL [Concomitant]
     Active Substance: FLUOROURACIL
     Indication: Pancreatic carcinoma
     Dosage: 1350 MG/M2
     Route: 065
     Dates: start: 20211104, end: 20211105
  30. FLUOROURACIL [Concomitant]
     Active Substance: FLUOROURACIL
     Dosage: 1350 MG/M2
     Route: 065
     Dates: start: 20211118, end: 20211119
  31. FLUOROURACIL [Concomitant]
     Active Substance: FLUOROURACIL
     Dosage: 1350 MG/M2
     Route: 065
     Dates: start: 20211223, end: 20211225
  32. FLUOROURACIL [Concomitant]
     Active Substance: FLUOROURACIL
     Dosage: 1350 MG/M2
     Route: 065
     Dates: start: 20220113, end: 20220115
  33. FLUOROURACIL [Concomitant]
     Active Substance: FLUOROURACIL
     Dosage: 1350 MG/M2
     Route: 065
     Dates: start: 20220203, end: 20220205
  34. FLUOROURACIL [Concomitant]
     Active Substance: FLUOROURACIL
     Dosage: 1350 MG/M2
     Route: 065
     Dates: start: 20220217, end: 20220219
  35. FLUOROURACIL [Concomitant]
     Active Substance: FLUOROURACIL
     Dosage: 1350 MG/M2
     Route: 065
     Dates: start: 20220317, end: 20220319
  36. FLUOROURACIL [Concomitant]
     Active Substance: FLUOROURACIL
     Dosage: 1200 MG/M2
     Route: 065
     Dates: start: 20220331, end: 20220402
  37. FLUOROURACIL [Concomitant]
     Active Substance: FLUOROURACIL
     Dosage: 1250 MG/M2
     Route: 065
     Dates: start: 20220414, end: 20220416
  38. FLUOROURACIL [Concomitant]
     Active Substance: FLUOROURACIL
     Dosage: 1250 MG/M2
     Route: 065
     Dates: start: 20220428, end: 20220430
  39. FLUOROURACIL [Concomitant]
     Active Substance: FLUOROURACIL
     Dosage: 1250 MG/M2
     Route: 065
     Dates: start: 20220519, end: 20220521
  40. FLUOROURACIL [Concomitant]
     Active Substance: FLUOROURACIL
     Dosage: 1250 MG/M2
     Route: 065
     Dates: start: 20220602, end: 20220604
  41. FLUOROURACIL [Concomitant]
     Active Substance: FLUOROURACIL
     Dosage: 1250 MG/M2
     Route: 065
     Dates: start: 20220616, end: 20220618
  42. FLUOROURACIL [Concomitant]
     Active Substance: FLUOROURACIL
     Dosage: 1250 MG/M2
     Route: 065
     Dates: start: 20220630, end: 20220702
  43. PALONOSETRON HYDROCHLORIDE [Concomitant]
     Active Substance: PALONOSETRON HYDROCHLORIDE
     Indication: Chemotherapy side effect prophylaxis
     Dosage: UNKNOWN
     Route: 065
  44. DEXAMETHASONE [Concomitant]
     Active Substance: DEXAMETHASONE
     Indication: Chemotherapy side effect prophylaxis
     Dosage: UNKNOWN
  45. APREPITANT [Concomitant]
     Active Substance: APREPITANT
     Indication: Chemotherapy side effect prophylaxis
     Dosage: UNKNOWN
     Route: 048

REACTIONS (5)
  - Malignant neoplasm progression [Fatal]
  - Leukopenia [Recovering/Resolving]
  - Leukopenia [Recovered/Resolved]
  - Neutropenia [Recovered/Resolved]
  - Off label use [Unknown]

NARRATIVE: CASE EVENT DATE: 20211104
